FAERS Safety Report 10725364 (Version 1)
Quarter: 2015Q1

REPORT INFORMATION
  Report Type: Spontaneous
  Country: US (occurrence: US)
  Receive Date: 20150121
  Receipt Date: 20150121
  Transmission Date: 20150721
  Serious: No
  Sender: FDA-Public Use
  Company Number: US-BRISTOL-MYERS SQUIBB COMPANY-BMS-2015-001812

PATIENT
  Sex: Female
  Weight: 100 kg

DRUGS (2)
  1. BYDUREON [Suspect]
     Active Substance: EXENATIDE
     Indication: DIABETES MELLITUS
     Dosage: UNK, QWK
     Route: 065
  2. GLIPIZIDE/METFORMIN [Concomitant]
     Active Substance: GLIPIZIDE\METFORMIN HYDROCHLORIDE
     Indication: PRODUCT USED FOR UNKNOWN INDICATION
     Route: 065

REACTIONS (6)
  - Sneezing [Unknown]
  - Paranasal sinus discomfort [Unknown]
  - Upper-airway cough syndrome [Unknown]
  - Oropharyngeal pain [Unknown]
  - Respiratory tract congestion [Unknown]
  - Cough [Unknown]
